FAERS Safety Report 20065020 (Version 1)
Quarter: 2021Q4

REPORT INFORMATION
  Report Type: Spontaneous
  Country: US (occurrence: US)
  Receive Date: 20211113
  Receipt Date: 20211113
  Transmission Date: 20220304
  Serious: Yes (Hospitalization, Other)
  Sender: FDA-Public Use
  Company Number: US-GLAND PHARMA LIMITED-2021US007830

PATIENT
  Age: 32 Year
  Sex: Male
  Weight: 88 kg

DRUGS (3)
  1. DEXMEDETOMIDINE HYDROCHLORIDE [Suspect]
     Active Substance: DEXMEDETOMIDINE HYDROCHLORIDE
     Indication: Sedation
     Dosage: 0.2 UG/KG/HR TO 0.8 UG/KG/HR
     Route: 065
  2. FENTANYL [Concomitant]
     Active Substance: FENTANYL
     Indication: Thermal burn
     Dosage: UNK
     Route: 065
  3. PROPOFOL [Concomitant]
     Active Substance: PROPOFOL
     Indication: Thermal burn
     Dosage: UNK
     Route: 065

REACTIONS (2)
  - Diabetes insipidus [Recovering/Resolving]
  - Torsade de pointes [Recovered/Resolved]
